FAERS Safety Report 21814745 (Version 2)
Quarter: 2023Q1

REPORT INFORMATION
  Report Type: Spontaneous
  Country: US (occurrence: US)
  Receive Date: 20230104
  Receipt Date: 20230207
  Transmission Date: 20230418
  Serious: Yes (Other)
  Sender: FDA-Public Use
  Company Number: US-BRISTOL-MYERS SQUIBB COMPANY-2023-000829

PATIENT
  Age: 82 Year
  Sex: Female
  Weight: 72.12 kg

DRUGS (1)
  1. INREBIC [Suspect]
     Active Substance: FEDRATINIB HYDROCHLORIDE
     Indication: Thrombocytosis
     Dosage: ONCE DAILY
     Route: 048
     Dates: start: 20221209

REACTIONS (2)
  - Epistaxis [Unknown]
  - Haemoglobin decreased [Unknown]
